FAERS Safety Report 5452854-8 (Version None)
Quarter: 2007Q3

REPORT INFORMATION
  Report Type: 
  Country: None (occurrence: None)
  Receive Date: 20070914
  Receipt Date: 20070904
  Transmission Date: 20080115
  Serious: Yes (Death, Hospitalization)
  Sender: FDA-Public Use
  Company Number: US-JNJFOC-20070603931

PATIENT
  Age: 32 Year
  Sex: Male
  Weight: 149.69 kg

DRUGS (2)
  1. TOPAMAX [Suspect]
     Indication: MIGRAINE
     Route: 065
  2. TOPAMAX [Suspect]
     Indication: EPILEPSY
     Dosage: ^1 MONTH^
     Route: 065

REACTIONS (3)
  - BRONCHOPNEUMONIA [None]
  - CONVULSION [None]
  - HEADACHE [None]
